FAERS Safety Report 15187061 (Version 1)
Quarter: 2018Q3

REPORT INFORMATION
  Report Type: Report from Study
  Country: US (occurrence: US)
  Receive Date: 20180723
  Receipt Date: 20180723
  Transmission Date: 20181010
  Serious: No
  Sender: FDA-Public Use
  Company Number: US-EXELIXIS-CABO-18013392

PATIENT
  Sex: Male

DRUGS (21)
  1. FLORAJEN3 [Concomitant]
     Dosage: UNK
  2. QUESTRAN [Concomitant]
     Active Substance: CHOLESTYRAMINE
     Dosage: UNK
  3. CARAFATE [Concomitant]
     Active Substance: SUCRALFATE
     Dosage: UNK
  4. CENTRUM SILVER [Concomitant]
     Active Substance: MINERALS\VITAMINS
     Dosage: UNK
  5. HYALURONIC ACID [Concomitant]
     Active Substance: HYALURONIC ACID
     Dosage: UNK
  6. NASACORT [Concomitant]
     Active Substance: TRIAMCINOLONE ACETONIDE
     Dosage: UNK
  7. NEUPOGEN [Concomitant]
     Active Substance: FILGRASTIM
     Dosage: UNK
  8. CLOTRIMAZOLE AND BETAMETHASONE [Concomitant]
     Active Substance: BETAMETHASONE\CLOTRIMAZOLE
     Dosage: UNK
  9. COMPAZINE [Concomitant]
     Active Substance: PROCHLORPERAZINE MALEATE
     Dosage: UNK
  10. LEVOTHYROXINE. [Concomitant]
     Active Substance: LEVOTHYROXINE
     Dosage: UNK
  11. TIZANIDINE. [Concomitant]
     Active Substance: TIZANIDINE
     Dosage: UNK
  12. COMETRIQ [Suspect]
     Active Substance: CABOZANTINIB S-MALATE
     Dosage: 100 MG, QD
     Route: 048
  13. FLUCONAZOLE. [Concomitant]
     Active Substance: FLUCONAZOLE
     Dosage: UNK
  14. GLUCOSAMINE [Concomitant]
     Active Substance: GLUCOSAMINE
     Dosage: UNK
  15. COMETRIQ [Suspect]
     Active Substance: CABOZANTINIB S-MALATE
     Indication: THYROID CANCER
     Dosage: 100 MG, QD
     Route: 048
     Dates: start: 20170831, end: 201712
  16. FISH OIL [Concomitant]
     Active Substance: FISH OIL
     Dosage: UNK
  17. METFORMIN [Concomitant]
     Active Substance: METFORMIN HYDROCHLORIDE
     Dosage: UNK
  18. DICLOFENAC POTASSIUM. [Concomitant]
     Active Substance: DICLOFENAC POTASSIUM
     Dosage: UNK
  19. OXYCODONE [Concomitant]
     Active Substance: OXYCODONE
     Dosage: UNK
  20. TYLENOL ARTHRITIS PAIN [Concomitant]
     Active Substance: ACETAMINOPHEN
     Dosage: UNK
  21. PROTONIX [Concomitant]
     Active Substance: PANTOPRAZOLE SODIUM
     Dosage: UNK

REACTIONS (2)
  - Dysphonia [Unknown]
  - Malignant neoplasm progression [Unknown]
